FAERS Safety Report 5957725-6 (Version None)
Quarter: 2008Q4

REPORT INFORMATION
  Report Type: 
  Country: None (occurrence: None)
  Receive Date: 20081119
  Receipt Date: 20081111
  Transmission Date: 20090506
  Serious: Yes (Hospitalization)
  Sender: FDA-Public Use
  Company Number: JP-ASTRAZENECA-2008AP05829

PATIENT
  Age: 53 Year
  Sex: Male
  Weight: 51 kg

DRUGS (15)
  1. IRESSA [Suspect]
     Indication: ADENOCARCINOMA
     Route: 048
     Dates: start: 20060413, end: 20060507
  2. IRESSA [Suspect]
     Route: 048
     Dates: start: 20060515, end: 20070401
  3. IRESSA [Suspect]
     Route: 048
     Dates: start: 20080619, end: 20080707
  4. OMEPRAL [Concomitant]
     Indication: PEPTIC ULCER
     Route: 048
     Dates: start: 20070409
  5. CELESTONE [Concomitant]
     Indication: METASTASES TO CENTRAL NERVOUS SYSTEM
     Route: 048
     Dates: start: 20070612
  6. COTRIM [Concomitant]
     Indication: PROPHYLAXIS
     Dosage: SULFAMETHOXAZOLE 410 MG AND TRIMETHOPRIM 80 MG
     Route: 048
     Dates: start: 20070612
  7. GLAKAY [Concomitant]
     Indication: OSTEOPOROSIS
     Route: 048
     Dates: start: 20070612
  8. LOXONIN [Concomitant]
     Indication: PAIN
     Route: 048
     Dates: start: 20080208
  9. PROMAC [Concomitant]
     Indication: PEPTIC ULCER
     Route: 048
     Dates: start: 20060405
  10. ZYRTEC [Concomitant]
     Indication: PRURITUS
     Route: 048
     Dates: start: 20080401
  11. ROHYPNOL [Concomitant]
     Indication: INSOMNIA
     Route: 048
     Dates: start: 20070719
  12. PURSENNID [Concomitant]
     Indication: CONSTIPATION
     Route: 048
     Dates: start: 20060412
  13. MAGMITT [Concomitant]
     Indication: CONSTIPATION
     Route: 048
     Dates: start: 20080527
  14. OXYCONTIN [Concomitant]
     Indication: PAIN
     Route: 048
     Dates: start: 20070517
  15. FENTANYL CITRATE [Concomitant]
     Indication: PAIN
     Route: 062
     Dates: start: 20080215

REACTIONS (3)
  - DIARRHOEA [None]
  - HERPES ZOSTER [None]
  - LUNG DISORDER [None]
